FAERS Safety Report 15323103 (Version 4)
Quarter: 2018Q3

REPORT INFORMATION
  Report Type: Report from Study
  Country: JP (occurrence: JP)
  Receive Date: 20180827
  Receipt Date: 20180910
  Transmission Date: 20181010
  Serious: Yes (Hospitalization)
  Sender: FDA-Public Use
  Company Number: JP-EISAI MEDICAL RESEARCH-EC-2018-044438

PATIENT
  Age: 68 Year
  Sex: Male
  Weight: 51 kg

DRUGS (11)
  1. LOXOPROFEN NA [Concomitant]
     Active Substance: LOXOPROFEN SODIUM
  2. POSTERISAN [Concomitant]
     Active Substance: LIDOCAINE
  3. PEMBROLIZUMAB. [Suspect]
     Active Substance: PEMBROLIZUMAB
     Indication: RENAL CANCER
     Route: 041
     Dates: start: 20180403, end: 20180830
  4. CONIEL [Concomitant]
     Active Substance: BENIDIPINE HYDROCHLORIDE
  5. THYRADIN S [Concomitant]
     Active Substance: LEVOTHYROXINE SODIUM
  6. ANTEBATE OINTMENT [Concomitant]
     Active Substance: BETAMETHASONE BUTYRATE PROPIONATE
  7. GEBEN [Concomitant]
     Active Substance: SILVER SULFADIAZINE
  8. LENVATINIB [Suspect]
     Active Substance: LENVATINIB
     Indication: RENAL CANCER
     Route: 048
     Dates: start: 20180403, end: 20180830
  9. KERATINAMIN KOWA [Concomitant]
  10. AZUNOL GARGLE LIQUID [Concomitant]
  11. AZILVA [Concomitant]
     Active Substance: AZILSARTAN KAMEDOXOMIL
     Indication: RENAL CANCER

REACTIONS (3)
  - Decreased appetite [Recovering/Resolving]
  - Weight decreased [Recovering/Resolving]
  - Dysgeusia [Recovering/Resolving]

NARRATIVE: CASE EVENT DATE: 20180501
